FAERS Safety Report 17942669 (Version 1)
Quarter: 2020Q2

REPORT INFORMATION
  Report Type: Spontaneous
  Country: CN (occurrence: CN)
  Receive Date: 20200625
  Receipt Date: 20200625
  Transmission Date: 20200714
  Serious: Yes (Hospitalization, Other)
  Sender: FDA-Public Use
  Company Number: CN-PFIZER INC-2020243518

PATIENT
  Age: 70 Year
  Sex: Female
  Weight: 58 kg

DRUGS (4)
  1. ASPIRIN (E.C.) [Suspect]
     Active Substance: ASPIRIN
     Indication: PLATELET AGGREGATION
     Dosage: 0.1 G, 1X/DAY
     Route: 048
     Dates: start: 20200602, end: 20200608
  2. TEPRENONE [Concomitant]
     Active Substance: TEPRENONE
     Indication: SYMPTOMATIC TREATMENT
     Dosage: 50 MG, 3X/DAY
     Route: 048
     Dates: start: 20200602, end: 20200614
  3. MEDROL [Suspect]
     Active Substance: METHYLPREDNISOLONE
     Indication: INFLAMMATION
     Dosage: 12 MG, 1X/DAY
     Route: 048
     Dates: start: 20200602, end: 20200611
  4. FEN LE [HYDROXYCHLOROQUINE SULFATE] [Concomitant]
     Active Substance: HYDROXYCHLOROQUINE SULFATE
     Indication: SYMPTOMATIC TREATMENT
     Dosage: 0.2 G, 2X/DAY
     Route: 048
     Dates: start: 20200603, end: 20200614

REACTIONS (1)
  - Melaena [Not Recovered/Not Resolved]

NARRATIVE: CASE EVENT DATE: 20200608
